FAERS Safety Report 22385009 (Version 2)
Quarter: 2023Q2

REPORT INFORMATION
  Report Type: Spontaneous
  Country: GB (occurrence: GB)
  Receive Date: 20230530
  Receipt Date: 20230601
  Transmission Date: 20230722
  Serious: Yes (Disabling, Other)
  Sender: FDA-Public Use
  Company Number: GB-AMERICAN REGENT INC-2023001268

PATIENT
  Sex: Female
  Weight: 85.4 kg

DRUGS (4)
  1. FERINJECT [Suspect]
     Active Substance: FERRIC CARBOXYMALTOSE
     Indication: Anaemia
     Dosage: 1000 MILLIGRAM, 1 IN 1 TOTAL
     Dates: start: 20230214, end: 20230214
  2. FERINJECT [Suspect]
     Active Substance: FERRIC CARBOXYMALTOSE
     Dosage: 700 MILLIGRAM, 1 IN 1 TOTAL
     Dates: start: 20230221, end: 20230221
  3. DALTEPARIN [Concomitant]
     Active Substance: DALTEPARIN
     Indication: Anticoagulant therapy
     Dosage: 5000 INTERNATIONAL UNIT
     Route: 058
     Dates: start: 20230214
  4. FERROUS SULFATE [Concomitant]
     Active Substance: FERROUS SULFATE
     Indication: Anaemia
     Dosage: 200 MILLIGRAM
     Route: 048
     Dates: start: 20230210

REACTIONS (6)
  - Placenta accreta [Unknown]
  - Haemorrhage in pregnancy [Unknown]
  - Maternal exposure during pregnancy [Recovered/Resolved]
  - Premature baby [Recovered/Resolved]
  - Infusion site discolouration [Not Recovered/Not Resolved]
  - Infusion site swelling [Unknown]

NARRATIVE: CASE EVENT DATE: 20230101
